FAERS Safety Report 13048755 (Version 1)
Quarter: 2016Q4

REPORT INFORMATION
  Report Type: Spontaneous
  Country: CH (occurrence: CH)
  Receive Date: 20161221
  Receipt Date: 20161221
  Transmission Date: 20170207
  Serious: Yes (Other)
  Sender: FDA-Public Use
  Company Number: CH-AMGEN-CHESP2016177394

PATIENT
  Age: 74 Year
  Sex: Female
  Weight: 77 kg

DRUGS (13)
  1. VI-DE 3 [Concomitant]
     Active Substance: CHOLECALCIFEROL
     Dosage: 50 DROPS/QWK
  2. METOPROLOL. [Concomitant]
     Active Substance: METOPROLOL
     Dosage: 50 MG, QD
  3. TARGIN [Concomitant]
     Active Substance: NALOXONE HYDROCHLORIDE\OXYCODONE HYDROCHLORIDE
     Dosage: UNK UNK, BID
  4. CIPRALEX [Suspect]
     Active Substance: ESCITALOPRAM OXALATE
     Indication: PRODUCT USED FOR UNKNOWN INDICATION
     Dosage: 10 MG, UNK
     Route: 065
  5. SIMVASTATIN. [Concomitant]
     Active Substance: SIMVASTATIN
  6. PONSTAN [Concomitant]
     Active Substance: MEFENAMIC ACID
     Dosage: UNK UNK, AS NECESSARY
  7. PROLIA [Suspect]
     Active Substance: DENOSUMAB
     Dosage: UNK
     Route: 065
     Dates: start: 201510
  8. PANTOPRAZOLE SODIUM. [Suspect]
     Active Substance: PANTOPRAZOLE SODIUM
     Indication: PRODUCT USED FOR UNKNOWN INDICATION
     Dosage: 20 MG, QD
     Route: 065
  9. BEKUNIS BISACODYL [Concomitant]
     Dosage: UNK UNK, BID
  10. PROLIA [Suspect]
     Active Substance: DENOSUMAB
     Indication: OSTEOPOROSIS
     Dosage: 60 MG, Q6MO
     Route: 065
     Dates: start: 201311, end: 201404
  11. LEXOTANIL [Concomitant]
     Active Substance: BROMAZEPAM
     Dosage: 3 MG, QD
  12. KALCIPOS D3 [Concomitant]
     Dosage: UNK UNK, QD
  13. LOSARTAN. [Concomitant]
     Active Substance: LOSARTAN
     Dosage: 50 MG, UNK

REACTIONS (4)
  - Pelvic fracture [Not Recovered/Not Resolved]
  - Spinal fracture [Recovering/Resolving]
  - Bone density decreased [Recovering/Resolving]
  - Rebound effect [Recovering/Resolving]

NARRATIVE: CASE EVENT DATE: 201506
